FAERS Safety Report 11594316 (Version 1)
Quarter: 2015Q4

REPORT INFORMATION
  Report Type: Spontaneous
  Country: US (occurrence: US)
  Receive Date: 20151005
  Receipt Date: 20151005
  Transmission Date: 20160304
  Serious: No
  Sender: FDA-Public Use
  Company Number: US-BAYER-2015-426852

PATIENT
  Age: 81 Year
  Sex: Male
  Weight: 76.19 kg

DRUGS (2)
  1. OXYTROL FOR WOMEN [Suspect]
     Active Substance: OXYBUTYNIN
     Indication: BLADDER SPASM
     Dosage: 1 DF EVERY 4 DAYS
     Route: 061
     Dates: start: 2014
  2. OXYTROL FOR WOMEN [Suspect]
     Active Substance: OXYBUTYNIN
     Indication: BLADDER SPASM
     Dosage: 1 DF FOR 5 DAYS
     Route: 061

REACTIONS (3)
  - Expired product administered [Not Recovered/Not Resolved]
  - Product use issue [None]
  - Inappropriate schedule of drug administration [None]
